FAERS Safety Report 6468920-4 (Version None)
Quarter: 2009Q4

REPORT INFORMATION
  Report Type: 
  Country: None (occurrence: None)
  Receive Date: 20091203
  Receipt Date: 20071102
  Transmission Date: 20100525
  Serious: Yes (Death, Other)
  Sender: FDA-Public Use
  Company Number: GB-ELI_LILLY_AND_COMPANY-GB200511000193

PATIENT
  Age: 64 Year
  Sex: Female

DRUGS (8)
  1. CYMBALTA [Suspect]
     Dosage: 60 MG, UNK
     Dates: start: 20050701
  2. ASPIRIN [Concomitant]
     Dosage: UNK, UNKNOWN
  3. VENLAFAXINE [Concomitant]
     Dosage: UNK, UNKNOWN
  4. PROMETHAZINE [Concomitant]
     Dosage: UNK, UNKNOWN
  5. ZOPICLONE [Concomitant]
     Dosage: UNK, UNKNOWN
  6. LITHIUM [Concomitant]
     Dosage: 600 MG, DAILY (1/D)
  7. LITHIUM [Concomitant]
     Dosage: 2400 MG, DAILY (1/D)
  8. LEVOTHYROXINE SODIUM [Concomitant]
     Dosage: 25 MG, UNK

REACTIONS (4)
  - ACCIDENTAL OVERDOSE [None]
  - BLOOD PRESSURE DECREASED [None]
  - HEART RATE DECREASED [None]
  - MYOCARDIAL INFARCTION [None]
